FAERS Safety Report 21184863 (Version 3)
Quarter: 2022Q3

REPORT INFORMATION
  Report Type: Report from Study
  Country: JP (occurrence: JP)
  Receive Date: 20220808
  Receipt Date: 20220830
  Transmission Date: 20221026
  Serious: Yes (Death, Hospitalization, Other)
  Sender: FDA-Public Use
  Company Number: JP-PFIZER INC-PV202200037832

PATIENT
  Age: 8 Decade
  Sex: Male
  Weight: 52.7 kg

DRUGS (5)
  1. VYNDAQEL [Suspect]
     Active Substance: TAFAMIDIS MEGLUMINE
     Indication: Cardiac amyloidosis
     Dosage: 80 MG, DAILY
     Route: 048
  2. VYNDAQEL [Suspect]
     Active Substance: TAFAMIDIS MEGLUMINE
     Dosage: 20 MG
     Route: 048
  3. TOLVAPTAN [Concomitant]
     Active Substance: TOLVAPTAN
     Dosage: 15 MG, DAILY
  4. PIMOBENDAN [Concomitant]
     Active Substance: PIMOBENDAN
     Indication: Cardiac failure chronic
     Dosage: 5 MG, DAILY
     Route: 048
     Dates: start: 20220330
  5. DOBUTAMINE [Concomitant]
     Active Substance: DOBUTAMINE HYDROCHLORIDE
     Dosage: UNK

REACTIONS (10)
  - Atrial fibrillation [Fatal]
  - Cardiac resynchronisation therapy [Fatal]
  - Bundle branch block left [Fatal]
  - Ejection fraction decreased [Fatal]
  - Ventricular tachycardia [Fatal]
  - Cardiac failure [Fatal]
  - Loss of personal independence in daily activities [Fatal]
  - Cardiac failure acute [Fatal]
  - Ventricular hypokinesia [Fatal]
  - Cardiomyopathy [Fatal]
